FAERS Safety Report 7490853-5 (Version None)
Quarter: 2011Q2

REPORT INFORMATION
  Report Type: 
  Country: None (occurrence: None)
  Receive Date: 20110517
  Receipt Date: 20110517
  Transmission Date: 20111010
  Serious: No
  Sender: FDA-Public Use
  Company Number: None

PATIENT
  Sex: Male
  Weight: 74.8435 kg

DRUGS (1)
  1. PRADAXA [Suspect]
     Indication: ATRIAL FIBRILLATION
     Dosage: TABLET TWICE DAILY PO
     Route: 048

REACTIONS (4)
  - FOREIGN BODY [None]
  - DYSPHAGIA [None]
  - PRODUCT FRIABLE [None]
  - PHARYNGEAL OEDEMA [None]
